FAERS Safety Report 17404589 (Version 2)
Quarter: 2020Q3

REPORT INFORMATION
  Report Type: Other
  Country: GB (occurrence: GB)
  Receive Date: 20200211
  Receipt Date: 20200416
  Transmission Date: 20201105
  Serious: Yes (Other)
  Sender: FDA-Public Use
  Company Number: GB-CELLTRION INC.-2020GB018502

PATIENT

DRUGS (11)
  1. RITUXIMAB (UNKNOWN) [Suspect]
     Active Substance: RITUXIMAB
     Indication: DIFFUSE LARGE B-CELL LYMPHOMA
     Dosage: 650 MG, 3/WEEK
     Route: 042
     Dates: start: 20191128
  2. COTRIMOXAZOLE [Concomitant]
     Active Substance: SULFAMETHOXAZOLE\TRIMETHOPRIM
     Dosage: 480, EVERY 0.5 DAYS BD 3 X WK
     Route: 048
     Dates: start: 20191101
  3. POLATUZUMAB VEDOTIN. [Suspect]
     Active Substance: POLATUZUMAB VEDOTIN
     Indication: DIFFUSE LARGE B-CELL LYMPHOMA
     Dosage: 108 MG, 3/WEEK
     Route: 042
     Dates: start: 20191128
  4. COTRIMOXAZOLE [Concomitant]
     Active Substance: SULFAMETHOXAZOLE\TRIMETHOPRIM
     Indication: PROPHYLAXIS
     Dosage: BD 3 X WK
     Route: 048
     Dates: start: 20191101
  5. RITUXIMAB (UNKNOWN) [Suspect]
     Active Substance: RITUXIMAB
     Dosage: UNK
  6. BENDAMUSTINE [Suspect]
     Active Substance: BENDAMUSTINE
     Dosage: 125 MG, EVERY 21 DAYS
     Route: 042
     Dates: start: 20200220
  7. RITUXIMAB (UNKNOWN) [Suspect]
     Active Substance: RITUXIMAB
     Dosage: 650 MG, 3/WEEK
     Route: 042
     Dates: start: 20191128
  8. RITUXIMAB (UNKNOWN) [Suspect]
     Active Substance: RITUXIMAB
     Dosage: 700 MG, EVERY 21 DAYS
     Route: 042
     Dates: start: 20200220
  9. BENDAMUSTINE [Suspect]
     Active Substance: BENDAMUSTINE
     Indication: DIFFUSE LARGE B-CELL LYMPHOMA
     Dosage: 157.5 MG, 3/WEEK
     Route: 042
     Dates: start: 20191128
  10. POLATUZUMAB VEDOTIN. [Suspect]
     Active Substance: POLATUZUMAB VEDOTIN
     Dosage: 116 MG, EVERY 21 DAYS
     Route: 042
     Dates: start: 20200220, end: 20200316
  11. COTRIMOXAZOLE [Concomitant]
     Active Substance: SULFAMETHOXAZOLE\TRIMETHOPRIM
     Dosage: 480, EVERY 0.5 DAYS
     Route: 048
     Dates: start: 20200220

REACTIONS (8)
  - Weight decreased [Recovering/Resolving]
  - Vomiting [Unknown]
  - Liver function test abnormal [Recovering/Resolving]
  - Overdose [Unknown]
  - Nausea [Unknown]
  - Underdose [Unknown]
  - Jaundice cholestatic [Unknown]
  - Liver function test abnormal [Not Recovered/Not Resolved]

NARRATIVE: CASE EVENT DATE: 20191217
